FAERS Safety Report 17401765 (Version 5)
Quarter: 2020Q4

REPORT INFORMATION
  Report Type: Other
  Country: AT (occurrence: AT)
  Receive Date: 20200211
  Receipt Date: 20201221
  Transmission Date: 20210113
  Serious: Yes (Hospitalization, Other)
  Sender: FDA-Public Use
  Company Number: AT-ROCHE-2520357

PATIENT
  Age: 54 Year
  Sex: Female
  Weight: 75 kg

DRUGS (19)
  1. TRASTUZUMAB EMTANSINE [Suspect]
     Active Substance: ADO-TRASTUZUMAB EMTANSINE
     Indication: HER2 POSITIVE BREAST CANCER
     Dosage: DOSE ON 17/MAY/2019?MOST RECENT DOSE PRIOR TO THE EVENT: 28/JUN/2019
     Route: 042
     Dates: start: 20190131
  2. TRASTUZUMAB. [Suspect]
     Active Substance: TRASTUZUMAB
     Indication: HER2 POSITIVE BREAST CANCER
     Dosage: MOST RECENT DOSE PRIOR TO THE EVENT: 11/OCT/2019.
     Route: 041
     Dates: start: 20180328, end: 20180328
  3. OCTENISEPT (AUSTRIA) [Concomitant]
     Indication: ONYCHOLYSIS
     Dates: start: 20180725
  4. BEPANTHENE [Concomitant]
     Active Substance: DEXPANTHENOL
     Indication: ONYCHOLYSIS
     Dates: start: 20180725
  5. KYTRIL [Concomitant]
     Active Substance: GRANISETRON HYDROCHLORIDE
     Dosage: ONGOING = NOT CHECKED
     Dates: start: 20190628, end: 20190830
  6. XGEVA [Concomitant]
     Active Substance: DENOSUMAB
     Dates: start: 20191219
  7. VINORELBINE [Suspect]
     Active Substance: VINORELBINE TARTRATE
     Indication: HER2 POSITIVE BREAST CANCER
     Dosage: RECENT DOSE: 28/OCT/2019
     Route: 048
     Dates: start: 20191011
  8. CAL D VITA [Concomitant]
     Dosage: ONGOING = CHECKED
     Dates: start: 20190425
  9. NERATINIB [Suspect]
     Active Substance: NERATINIB
     Indication: HER2 POSITIVE BREAST CANCER
     Route: 048
     Dates: start: 20200108
  10. ENTEROBENE [Concomitant]
     Dates: start: 20200108
  11. DEXAMETHASONE. [Concomitant]
     Active Substance: DEXAMETHASONE
     Dates: start: 20190628, end: 20190830
  12. BEPANTHEN EYE [Concomitant]
     Active Substance: DEXPANTHENOL\HYALURONATE SODIUM
     Indication: CONJUNCTIVITIS
     Dates: start: 20180619
  13. CAPECITABINE. [Suspect]
     Active Substance: CAPECITABINE
     Indication: HER2 POSITIVE BREAST CANCER
     Dosage: OTHER
     Route: 048
     Dates: start: 20191126, end: 20191218
  14. PERTUZUMAB. [Suspect]
     Active Substance: PERTUZUMAB
     Indication: HER2 POSITIVE BREAST CANCER
     Dosage: MOST RECENT DOSE PRIOR TO THE EVENT: 14/DEC/2018
     Route: 065
     Dates: start: 20180328, end: 20180328
  15. PACLITAXEL. [Suspect]
     Active Substance: PACLITAXEL
     Indication: HER2 POSITIVE BREAST CANCER
     Dosage: WEEKLY?RECENT DOSE ON 09/APR/2018
     Route: 042
     Dates: start: 20180328, end: 20180409
  16. TRASTUZUMAB. [Suspect]
     Active Substance: TRASTUZUMAB
     Dosage: MOST RECENT DOSE WAS RECEIVED ON 09/JAN/2019.
     Route: 041
     Dates: start: 20181123
  17. NAB-PACLITAXEL [Suspect]
     Active Substance: PACLITAXEL
     Indication: HER2 POSITIVE BREAST CANCER
     Dosage: DOSE ON 08/MAY/2018?MOST RECENT DOSE PRIOR TO THE EVENT: 16/JAN/2019
     Route: 042
     Dates: start: 20180416
  18. TRASTUZUMAB. [Suspect]
     Active Substance: TRASTUZUMAB
     Indication: HER2 POSITIVE BREAST CANCER
     Route: 041
     Dates: start: 20181214, end: 20190109
  19. PANTOLOC [Concomitant]
     Active Substance: PANTOPRAZOLE SODIUM
     Dosage: ONGOING = CHECKED
     Dates: start: 20191011

REACTIONS (7)
  - Febrile neutropenia [Recovered/Resolved]
  - Overdose [Unknown]
  - Intentional product use issue [Unknown]
  - Stomatitis [Recovered/Resolved]
  - Off label use [Unknown]
  - Tumour pain [Recovered/Resolved]
  - Breast cancer metastatic [Recovering/Resolving]

NARRATIVE: CASE EVENT DATE: 20190920
